FAERS Safety Report 6387744-X (Version None)
Quarter: 2009Q4

REPORT INFORMATION
  Report Type: 
  Country: None (occurrence: None)
  Receive Date: 20091005
  Receipt Date: 20090929
  Transmission Date: 20100525
  Serious: Yes (Hospitalization)
  Sender: FDA-Public Use
  Company Number: CA-BRISTOL-MYERS SQUIBB COMPANY-14783815

PATIENT
  Age: 57 Year
  Sex: Female

DRUGS (1)
  1. ORENCIA [Suspect]
     Indication: RHEUMATOID ARTHRITIS
     Dosage: 1YR OF TREATMENT
     Route: 042
     Dates: start: 20080131, end: 20090728

REACTIONS (2)
  - ANGIOPATHY [None]
  - CARDIAC FAILURE [None]
